FAERS Safety Report 25631615 (Version 3)
Quarter: 2025Q3

REPORT INFORMATION
  Report Type: Spontaneous
  Country: JP (occurrence: JP)
  Receive Date: 20250801
  Receipt Date: 20250827
  Transmission Date: 20251021
  Serious: Yes (Life-Threatening, Hospitalization, Disabling, Other)
  Sender: ACCORD
  Company Number: JP-Accord-496907

PATIENT
  Age: 53 Year
  Sex: Female
  Weight: 40.8 kg

DRUGS (21)
  1. TACROLIMUS [Suspect]
     Active Substance: TACROLIMUS
     Indication: Dermatomyositis
  2. CYCLOPHOSPHAMIDE [Suspect]
     Active Substance: CYCLOPHOSPHAMIDE
     Indication: Dermatomyositis
     Dosage: 700 MG (500 MG/M2) OF IVCY BIWEEKLY
     Route: 042
  3. BARICITINIB [Suspect]
     Active Substance: BARICITINIB
     Indication: Dermatomyositis
  4. METHYLPREDNISOLONE [Suspect]
     Active Substance: METHYLPREDNISOLONE
     Indication: Dermatomyositis
  5. PREDNISOLONE [Suspect]
     Active Substance: PREDNISOLONE
     Indication: Dermatomyositis
     Route: 048
  6. OXYGEN [Concomitant]
     Active Substance: OXYGEN
     Indication: Dermatomyositis
     Route: 045
  7. BARICITINIB [Suspect]
     Active Substance: BARICITINIB
     Indication: Interstitial lung disease
  8. PREDNISOLONE [Suspect]
     Active Substance: PREDNISOLONE
     Indication: Dermatomyositis
     Route: 048
  9. PREDNISOLONE [Suspect]
     Active Substance: PREDNISOLONE
     Indication: Dermatomyositis
     Route: 048
  10. PREDNISOLONE [Suspect]
     Active Substance: PREDNISOLONE
     Indication: Dermatomyositis
     Route: 048
  11. PREDNISOLONE [Suspect]
     Active Substance: PREDNISOLONE
     Indication: Dermatomyositis
     Route: 048
  12. PREDNISOLONE [Suspect]
     Active Substance: PREDNISOLONE
     Indication: Dermatomyositis
     Route: 048
  13. PREDNISOLONE [Suspect]
     Active Substance: PREDNISOLONE
     Indication: Dermatomyositis
     Route: 048
  14. PREDNISOLONE [Suspect]
     Active Substance: PREDNISOLONE
     Indication: Dermatomyositis
     Route: 048
  15. PREDNISOLONE [Suspect]
     Active Substance: PREDNISOLONE
     Indication: Dermatomyositis
     Route: 048
  16. PREDNISOLONE [Suspect]
     Active Substance: PREDNISOLONE
     Indication: Dermatomyositis
     Route: 048
  17. OXYGEN [Concomitant]
     Active Substance: OXYGEN
     Indication: Interstitial lung disease
     Route: 045
  18. TACROLIMUS [Suspect]
     Active Substance: TACROLIMUS
     Indication: Interstitial lung disease
     Dosage: 5 MG/DAY
  19. PREDNISOLONE [Suspect]
     Active Substance: PREDNISOLONE
     Indication: Interstitial lung disease
     Route: 048
  20. CYCLOPHOSPHAMIDE [Suspect]
     Active Substance: CYCLOPHOSPHAMIDE
     Indication: Interstitial lung disease
     Dosage: 700 MG (500 MG/M2) OF IVCY BIWEEKLY
     Route: 042
  21. METHYLPREDNISOLONE [Suspect]
     Active Substance: METHYLPREDNISOLONE
     Indication: Interstitial lung disease

REACTIONS (4)
  - Epstein-Barr virus associated lymphoproliferative disorder [Recovered/Resolved]
  - Central nervous system lymphoma [Recovered/Resolved]
  - Epstein-Barr virus infection reactivation [Recovered/Resolved]
  - Diffuse large B-cell lymphoma [Recovered/Resolved]
